FAERS Safety Report 7441459-5 (Version None)
Quarter: 2011Q2

REPORT INFORMATION
  Report Type: 
  Country: None (occurrence: None)
  Receive Date: 20110418
  Receipt Date: 20100914
  Transmission Date: 20111010
  Serious: Yes (Disabling)
  Sender: FDA-Public Use
  Company Number: APP201000629

PATIENT
  Age: 34 Year
  Sex: Female

DRUGS (3)
  1. SENSORCAINE [Suspect]
     Indication: MUSCULOSKELETAL PAIN
     Dosage: 120 ML
     Dates: start: 20041203
  2. STRYKER PAIN PUMP [Suspect]
     Indication: MUSCULOSKELETAL PAIN
     Dates: start: 20041203
  3. CIPRO (CYPROHEPTADINE HYDROCHLORIDE) [Concomitant]

REACTIONS (7)
  - PROCEDURAL PAIN [None]
  - SURGICAL FAILURE [None]
  - INTERVERTEBRAL DISC PROTRUSION [None]
  - JOINT INJURY [None]
  - PARAESTHESIA [None]
  - MUSCULOSKELETAL PAIN [None]
  - NO THERAPEUTIC RESPONSE [None]
